FAERS Safety Report 20089333 (Version 2)
Quarter: 2022Q1

REPORT INFORMATION
  Report Type: Report from Study
  Country: JP (occurrence: JP)
  Receive Date: 20211119
  Receipt Date: 20220228
  Transmission Date: 20220423
  Serious: Yes (Hospitalization)
  Sender: FDA-Public Use
  Company Number: JP-INSMED INCORPORATED-2021-10018-JPAA

PATIENT
  Age: 83 Year
  Sex: Female

DRUGS (1)
  1. ARIKAYCE [Suspect]
     Active Substance: AMIKACIN
     Indication: Product used for unknown indication
     Dosage: UNK
     Route: 055
     Dates: start: 20211022, end: 20211104

REACTIONS (2)
  - Physical deconditioning [Unknown]
  - Vertigo [Unknown]

NARRATIVE: CASE EVENT DATE: 20210101
